FAERS Safety Report 21037039 (Version 1)
Quarter: 2022Q3

REPORT INFORMATION
  Report Type: Spontaneous
  Country: US (occurrence: US)
  Receive Date: 20220702
  Receipt Date: 20220702
  Transmission Date: 20221027
  Serious: No
  Sender: FDA-Public Use
  Company Number: US-GLAXOSMITHKLINE-US2022AMR100373

PATIENT
  Age: 50 Year
  Sex: Female

DRUGS (1)
  1. ZEJULA [Suspect]
     Active Substance: NIRAPARIB
     Indication: Fallopian tube cancer
     Dosage: 200 MG, QD
     Dates: start: 202206

REACTIONS (8)
  - Nausea [Recovering/Resolving]
  - Anxiety [Recovering/Resolving]
  - Constipation [Recovering/Resolving]
  - Fatigue [Recovering/Resolving]
  - Hypersomnia [Recovering/Resolving]
  - Dry mouth [Recovering/Resolving]
  - Decreased activity [Recovering/Resolving]
  - Off label use [Unknown]

NARRATIVE: CASE EVENT DATE: 20220601
